FAERS Safety Report 13230410 (Version 3)
Quarter: 2017Q3

REPORT INFORMATION
  Report Type: Spontaneous
  Country: US (occurrence: US)
  Receive Date: 20170214
  Receipt Date: 20170713
  Transmission Date: 20171127
  Serious: Yes (Other)
  Sender: FDA-Public Use
  Company Number: US-TEVA-717308USA

PATIENT
  Sex: Female

DRUGS (7)
  1. CINNAMON. [Concomitant]
     Active Substance: CINNAMON
  2. HAWTHORN [Concomitant]
     Active Substance: CRATAEGUS LAEVIGATA FRUIT
  3. GLUCOSAMINE [Concomitant]
     Active Substance: GLUCOSAMINE
  4. COD LIVER OIL [Concomitant]
     Active Substance: COD LIVER OIL
  5. MAGNESIUM [Concomitant]
     Active Substance: MAGNESIUM
  6. COPAXONE [Suspect]
     Active Substance: GLATIRAMER ACETATE
     Indication: MULTIPLE SCLEROSIS
     Dosage: 20 MILLIGRAM DAILY;
     Route: 058
     Dates: start: 20140523
  7. TEGRETOL [Concomitant]
     Active Substance: CARBAMAZEPINE

REACTIONS (10)
  - Arthralgia [Not Recovered/Not Resolved]
  - Stress [Not Recovered/Not Resolved]
  - Pain in extremity [Not Recovered/Not Resolved]
  - Back pain [Unknown]
  - Walking aid user [Unknown]
  - Fatigue [Not Recovered/Not Resolved]
  - Multiple sclerosis relapse [Not Recovered/Not Resolved]
  - Drug dose omission [Unknown]
  - Injection site erythema [Not Recovered/Not Resolved]
  - Drug ineffective [Unknown]

NARRATIVE: CASE EVENT DATE: 2016
